FAERS Safety Report 13273343 (Version 2)
Quarter: 2017Q1

REPORT INFORMATION
  Report Type: Spontaneous
  Country: US (occurrence: US)
  Receive Date: 20170227
  Receipt Date: 20170306
  Transmission Date: 20170428
  Serious: Yes (Hospitalization, Other)
  Sender: FDA-Public Use
  Company Number: US-SA-2017SA031166

PATIENT
  Age: 66 Year
  Sex: Male

DRUGS (3)
  1. IMATINIB MESILATE [Suspect]
     Active Substance: IMATINIB MESYLATE
     Indication: CHRONIC MYELOID LEUKAEMIA
     Route: 065
  2. ASPIRIN. [Suspect]
     Active Substance: ASPIRIN
     Indication: ANTIPLATELET THERAPY
     Route: 065
  3. PLAVIX [Suspect]
     Active Substance: CLOPIDOGREL BISULFATE
     Indication: ANTIPLATELET THERAPY
     Route: 065

REACTIONS (16)
  - Erythema [Recovering/Resolving]
  - Joint effusion [Recovering/Resolving]
  - Platelet dysfunction [Recovered/Resolved]
  - Tenderness [Recovering/Resolving]
  - Joint range of motion decreased [Recovering/Resolving]
  - Haemarthrosis [Recovering/Resolving]
  - Arthralgia [Recovering/Resolving]
  - Anaemia [Recovered/Resolved]
  - Platelet function test abnormal [Recovered/Resolved]
  - Pain in extremity [Recovered/Resolved]
  - Palpitations [Recovered/Resolved]
  - Product use issue [Unknown]
  - Dizziness [Recovered/Resolved]
  - Asthenia [Recovered/Resolved]
  - Retroperitoneal haematoma [Recovered/Resolved]
  - Joint swelling [Recovering/Resolving]
